FAERS Safety Report 25885739 (Version 1)
Quarter: 2025Q4

REPORT INFORMATION
  Report Type: Spontaneous
  Country: CA (occurrence: CA)
  Receive Date: 20251006
  Receipt Date: 20251006
  Transmission Date: 20260117
  Serious: Yes (Other)
  Sender: PFIZER
  Company Number: CA-PFIZER INC-202500196560

PATIENT
  Age: 23 Year
  Sex: Female

DRUGS (3)
  1. IXIFI [Suspect]
     Active Substance: INFLIXIMAB-QBTX
     Indication: Crohn^s disease
     Dosage: 700 MG, EVERY 4 WEEKS
     Route: 042
     Dates: start: 20250703
  2. IXIFI [Suspect]
     Active Substance: INFLIXIMAB-QBTX
     Dosage: 700 MG, EVERY 4 WEEKS
     Route: 042
     Dates: start: 20250912
  3. PREDNISONE [Concomitant]
     Active Substance: PREDNISONE
     Dosage: UNK

REACTIONS (1)
  - Oral disorder [Unknown]

NARRATIVE: CASE EVENT DATE: 20250101
